FAERS Safety Report 23287899 (Version 1)
Quarter: 2023Q4

REPORT INFORMATION
  Report Type: Spontaneous
  Country: US (occurrence: US)
  Receive Date: 20231212
  Receipt Date: 20231212
  Transmission Date: 20240109
  Serious: Yes (Life-Threatening, Hospitalization, Other)
  Sender: FDA-Public Use
  Company Number: US-GRANULES-US-2023GRALIT00349

PATIENT
  Age: 21 Year
  Sex: Female

DRUGS (1)
  1. VENLAFAXINE HYDROCHLORIDE [Suspect]
     Active Substance: VENLAFAXINE HYDROCHLORIDE
     Indication: Product used for unknown indication
     Route: 048

REACTIONS (12)
  - Generalised tonic-clonic seizure [Unknown]
  - Multiple organ dysfunction syndrome [Unknown]
  - Cardiogenic shock [Unknown]
  - Left ventricular dysfunction [Unknown]
  - Ejection fraction decreased [Recovering/Resolving]
  - Tachycardia [Unknown]
  - Sinus tachycardia [Unknown]
  - Hypotension [Unknown]
  - Transaminases increased [Unknown]
  - Troponin increased [Unknown]
  - Electrocardiogram QT prolonged [Unknown]
  - Overdose [Unknown]
